FAERS Safety Report 7805576-X (Version None)
Quarter: 2011Q4

REPORT INFORMATION
  Report Type: 
  Country: None (occurrence: None)
  Receive Date: 20111010
  Receipt Date: 20111004
  Transmission Date: 20120403
  Serious: Yes (Hospitalization, Disabling)
  Sender: FDA-Public Use
  Company Number: JP-MERCK-1108USA02838

PATIENT
  Age: 10 Year
  Sex: Female
  Weight: 38 kg

DRUGS (3)
  1. PEPCID RPD [Suspect]
     Route: 048
     Dates: start: 20110710, end: 20110810
  2. LIMETHASON [Suspect]
     Indication: JUVENILE ARTHRITIS
     Route: 042
     Dates: start: 20110722, end: 20110809
  3. SOLU-MEDROL [Concomitant]
     Indication: JUVENILE ARTHRITIS
     Route: 041
     Dates: start: 20110712, end: 20110714

REACTIONS (1)
  - ACUTE HEPATIC FAILURE [None]
